FAERS Safety Report 5110729-8 (Version None)
Quarter: 2006Q3

REPORT INFORMATION
  Report Type: 
  Country: None (occurrence: None)
  Receive Date: 20060919
  Receipt Date: 20060911
  Transmission Date: 20061208
  Serious: No
  Sender: FDA-Public Use
  Company Number: 13506324

PATIENT
  Sex: Female

DRUGS (1)
  1. EMSAM [Suspect]

REACTIONS (2)
  - DEHYDRATION [None]
  - FALL [None]
